FAERS Safety Report 15575501 (Version 4)
Quarter: 2018Q4

REPORT INFORMATION
  Report Type: Spontaneous
  Country: US (occurrence: US)
  Receive Date: 20181101
  Receipt Date: 20181204
  Transmission Date: 20190205
  Serious: Yes (Hospitalization)
  Sender: FDA-Public Use
  Company Number: US-JNJFOC-20181030150

PATIENT
  Sex: Female
  Weight: 71.67 kg

DRUGS (5)
  1. TYLENOL REGULAR STRENGTH [Suspect]
     Active Substance: ACETAMINOPHEN
     Indication: PROCEDURAL PAIN
     Dosage: DAY BEFORE REPORTING DATE SHE ONLY TOOK A TOTAL OF 2 FOR THE DAY
     Route: 048
  2. TYLENOL REGULAR STRENGTH [Suspect]
     Active Substance: ACETAMINOPHEN
     Indication: PROCEDURAL PAIN
     Dosage: HER PAIN WAS REDUCING SO SHE WAS TAKING THEM AS NEEDED NOW.
     Route: 048
  3. TYLENOL REGULAR STRENGTH [Suspect]
     Active Substance: ACETAMINOPHEN
     Indication: PROCEDURAL PAIN
     Dosage: SHE WAS TAKING 3 TABLETS, 3 TIMES A DAY (EVERY 8 HOURS)
     Route: 048
  4. TYLENOL REGULAR STRENGTH [Suspect]
     Active Substance: ACETAMINOPHEN
     Indication: PROCEDURAL PAIN
     Dosage: 3 TABLETS TWICE A DAY
     Route: 048
  5. TYLENOL REGULAR STRENGTH [Suspect]
     Active Substance: ACETAMINOPHEN
     Indication: PROCEDURAL PAIN
     Dosage: THEN SHE WENT DOWN TO ONLY 2 TABLETS AT A TIME
     Route: 048

REACTIONS (4)
  - Therapeutic response unexpected [Unknown]
  - Product commingling [Unknown]
  - Product use in unapproved indication [Unknown]
  - Off label use [Unknown]
